FAERS Safety Report 10825867 (Version 1)
Quarter: 2015Q1

REPORT INFORMATION
  Report Type: Spontaneous
  Country: US (occurrence: US)
  Receive Date: 20150219
  Receipt Date: 20150219
  Transmission Date: 20150721
  Serious: Yes (Other)
  Sender: FDA-Public Use
  Company Number: US-DRREDDYS-USA/USA/15/0046079

PATIENT

DRUGS (1)
  1. CIPROFLOXACIN. [Suspect]
     Active Substance: CIPROFLOXACIN
     Indication: URINARY TRACT INFECTION
     Route: 065

REACTIONS (8)
  - Eye haemorrhage [Unknown]
  - Tinnitus [Unknown]
  - Hypoacusis [Unknown]
  - Eye infection [Unknown]
  - Tendonitis [Unknown]
  - Tendon rupture [Unknown]
  - Neuropathy peripheral [Not Recovered/Not Resolved]
  - Eye disorder [Unknown]
